FAERS Safety Report 9575847 (Version 1)
Quarter: 2013Q4

REPORT INFORMATION
  Report Type: Spontaneous
  Country: US (occurrence: US)
  Receive Date: 20131001
  Receipt Date: 20131001
  Transmission Date: 20140711
  Serious: No
  Sender: FDA-Public Use
  Company Number: US-AMGEN-USASP2013000073

PATIENT
  Sex: Male
  Weight: 113.38 kg

DRUGS (5)
  1. ENBREL [Suspect]
     Indication: RHEUMATOID ARTHRITIS
     Dosage: 50 MG, QWK
     Route: 058
  2. METHOTREXATE [Concomitant]
     Dosage: 2.5 MG, UNK
  3. NABUMETONE [Concomitant]
     Dosage: 500 MG, UNK
  4. TARKA [Concomitant]
     Dosage: 4-240 CR
  5. FOLIC ACID [Concomitant]
     Dosage: UNK

REACTIONS (5)
  - Rash papular [Unknown]
  - Vision blurred [Unknown]
  - Dyspnoea [Unknown]
  - Injection site haemorrhage [Unknown]
  - Fatigue [Unknown]
